FAERS Safety Report 9387847 (Version 5)
Quarter: 2013Q4

REPORT INFORMATION
  Report Type: Report from Study
  Country: AT (occurrence: AT)
  Receive Date: 20130708
  Receipt Date: 20131101
  Transmission Date: 20140711
  Serious: Yes (Death, Hospitalization)
  Sender: FDA-Public Use
  Company Number: AT-CELGENEUS-009-21880-13052184

PATIENT
  Age: 68 Year
  Sex: Male
  Weight: 113 kg

DRUGS (10)
  1. REVLIMID [Suspect]
     Indication: CHRONIC MYELOMONOCYTIC LEUKAEMIA
     Dosage: 15 MILLIGRAM
     Route: 048
     Dates: start: 20130423
  2. REVLIMID [Suspect]
     Dosage: 15 MILLIGRAM
     Route: 048
     Dates: end: 20130520
  3. THYREX [Concomitant]
     Indication: PRODUCT USED FOR UNKNOWN INDICATION
     Dosage: .16 MILLIGRAM
     Route: 065
     Dates: start: 2011
  4. CARVEDILOL [Concomitant]
     Indication: PRODUCT USED FOR UNKNOWN INDICATION
     Dosage: 50 MILLIGRAM
     Route: 065
  5. CARVEDILOL [Concomitant]
     Dosage: 25 MILLIGRAM
     Route: 065
  6. SERETIDE FORTE [Concomitant]
     Indication: PRODUCT USED FOR UNKNOWN INDICATION
     Dosage: PUFF
     Route: 055
  7. RAMIPRIL [Concomitant]
     Indication: PRODUCT USED FOR UNKNOWN INDICATION
     Dosage: 2.5 MILLIGRAM
     Route: 065
  8. OLEOVIT D3 [Concomitant]
     Indication: PRODUCT USED FOR UNKNOWN INDICATION
     Route: 065
  9. SPIRIVA [Concomitant]
     Indication: PRODUCT USED FOR UNKNOWN INDICATION
     Dosage: 18 MICROGRAM
     Route: 065
     Dates: start: 201305
  10. SPIRIVA [Concomitant]
     Dosage: .18
     Route: 065

REACTIONS (4)
  - Sepsis [Fatal]
  - Cardiac failure [Recovered/Resolved with Sequelae]
  - Anaemia [Recovered/Resolved with Sequelae]
  - Anaemia [Recovered/Resolved with Sequelae]
